FAERS Safety Report 6847801-8 (Version None)
Quarter: 2010Q3

REPORT INFORMATION
  Report Type: 
  Country: None (occurrence: None)
  Receive Date: 20100716
  Receipt Date: 20100629
  Transmission Date: 20110219
  Serious: Yes (Other)
  Sender: FDA-Public Use
  Company Number: US-SANOFI-AVENTIS-2010SA027136

PATIENT
  Age: 48 Year
  Sex: Female

DRUGS (50)
  1. METHOTREXATE [Suspect]
     Dates: start: 19981001, end: 19990701
  2. CELLCEPT [Suspect]
     Dates: start: 20010101, end: 20010901
  3. PLAQUENIL [Suspect]
     Dates: start: 19990701, end: 20020501
  4. PLAQUENIL [Suspect]
     Dates: start: 20020601, end: 20020801
  5. PLAQUENIL [Suspect]
     Dates: start: 20020801
  6. COLCHICINE [Suspect]
     Dates: start: 19991001, end: 20021201
  7. COLCHICINE [Suspect]
     Dates: start: 20040801
  8. CYTOXAN [Suspect]
     Route: 041
     Dates: start: 20021201, end: 20030101
  9. CYTOXAN [Suspect]
     Route: 041
     Dates: start: 20030101, end: 20030201
  10. CYTOXAN [Suspect]
     Route: 041
     Dates: start: 20030201, end: 20030301
  11. CYTOXAN [Suspect]
     Route: 041
     Dates: start: 20030301, end: 20030301
  12. CYTOXAN [Suspect]
     Route: 041
     Dates: start: 20030301, end: 20030301
  13. CYTOXAN [Suspect]
     Route: 041
     Dates: start: 20030401, end: 20030401
  14. CYTOXAN [Suspect]
     Route: 041
     Dates: start: 20030501, end: 20030701
  15. CYTOXAN [Suspect]
     Route: 041
     Dates: start: 20030801, end: 20030801
  16. CYTOXAN [Suspect]
     Route: 041
     Dates: start: 20030901, end: 20030901
  17. CYTOXAN [Suspect]
     Route: 041
     Dates: start: 20031001, end: 20050501
  18. ARAVA [Suspect]
     Dates: start: 20070601
  19. PREDNISONE [Suspect]
  20. PREDNISONE [Suspect]
  21. CYCLOSPORINE [Suspect]
     Dates: start: 20000501, end: 20010101
  22. LEUKERAN [Suspect]
     Dates: start: 20011101, end: 20020401
  23. LEUKERAN [Suspect]
     Dates: start: 20020401, end: 20020601
  24. LEUKERAN [Suspect]
     Dates: start: 20020601, end: 20020901
  25. ETANERCEPT [Suspect]
     Dates: start: 20040901, end: 20050201
  26. IMURAN [Suspect]
     Dates: start: 20050201, end: 20050401
  27. IMURAN [Suspect]
     Dates: start: 20070101, end: 20070301
  28. REMICADE [Suspect]
     Route: 041
     Dates: start: 20050401, end: 20050501
  29. REMICADE [Suspect]
     Route: 041
     Dates: start: 20050501, end: 20050701
  30. REMICADE [Suspect]
     Route: 041
     Dates: start: 20050701, end: 20050901
  31. REMICADE [Suspect]
     Route: 041
     Dates: start: 20050901, end: 20051101
  32. REMICADE [Suspect]
     Route: 041
     Dates: start: 20060101, end: 20060101
  33. RITUXAN [Suspect]
     Route: 041
     Dates: start: 20070601, end: 20070601
  34. RITUXAN [Suspect]
     Route: 041
     Dates: start: 20070701, end: 20070701
  35. IMMU-G [Concomitant]
  36. FUROSEMIDE [Concomitant]
  37. TERBUTALINE SULFATE [Concomitant]
  38. THEOPHYLLINE [Concomitant]
  39. FLUTICASONE/SALMETEROL [Concomitant]
  40. IPRATROPIUM BROMIDE/SALBUTAMOL SULFATE [Concomitant]
  41. ESOMEPRAZOLE MAGNESIUM [Concomitant]
  42. ERYTHROMYCIN [Concomitant]
  43. PENTOXIFYLLINE [Concomitant]
  44. PREGABALIN [Concomitant]
  45. ACYCLOVIR [Concomitant]
  46. SERTRALINE HCL [Concomitant]
  47. FOLIC ACID [Concomitant]
  48. FENTANYL [Concomitant]
  49. DAPSONE [Suspect]
     Dates: start: 19990901, end: 20000501
  50. DAPSONE [Suspect]
     Dates: start: 20030601, end: 20050901

REACTIONS (4)
  - ACCIDENTAL EXPOSURE [None]
  - MOUTH ULCERATION [None]
  - NEUTROPENIA [None]
  - SKIN CANCER [None]
